FAERS Safety Report 15752574 (Version 1)
Quarter: 2018Q4

REPORT INFORMATION
  Report Type: Spontaneous
  Country: US (occurrence: US)
  Receive Date: 20181221
  Receipt Date: 20181221
  Transmission Date: 20190205
  Serious: Yes (Other)
  Sender: FDA-Public Use
  Company Number: US-UNITED THERAPEUTICS-UNT-2018-021151

PATIENT
  Age: 4 Year
  Sex: Male

DRUGS (1)
  1. DINUTUXIMAB [Suspect]
     Active Substance: DINUTUXIMAB
     Indication: NEUROBLASTOMA
     Route: 041

REACTIONS (3)
  - Tachycardia [Unknown]
  - Pyrexia [Unknown]
  - Vascular device infection [Recovered/Resolved]
